FAERS Safety Report 16826446 (Version 1)
Quarter: 2019Q3

REPORT INFORMATION
  Report Type: Spontaneous
  Country: CN (occurrence: CN)
  Receive Date: 20190919
  Receipt Date: 20190919
  Transmission Date: 20191005
  Serious: Yes (Disabling)
  Sender: FDA-Public Use
  Company Number: CN-PFIZER INC-2019399402

PATIENT
  Age: 47 Year
  Sex: Male
  Weight: 65 kg

DRUGS (8)
  1. NORVASC [Suspect]
     Active Substance: AMLODIPINE BESYLATE
     Indication: HYPERTENSION
     Dosage: 5 MG, 1X/DAY
     Route: 045
     Dates: start: 20190825, end: 20190904
  2. HYZAAR [Suspect]
     Active Substance: HYDROCHLOROTHIAZIDE\LOSARTAN POTASSIUM
     Indication: HYPERTENSION
     Dosage: 1 DF, 1X/DAY
     Route: 045
     Dates: start: 20190825, end: 20190904
  3. CEFTAZIDIME. [Suspect]
     Active Substance: CEFTAZIDIME
     Indication: INFECTION
  4. LOSEC [OMEPRAZOLE SODIUM] [Suspect]
     Active Substance: OMEPRAZOLE SODIUM
     Indication: CEREBRAL HAEMORRHAGE
     Dosage: 40 MG, 1X/DAY
     Route: 041
     Dates: start: 20190825, end: 20190831
  5. CEFTAZIDIME. [Suspect]
     Active Substance: CEFTAZIDIME
     Indication: CEREBRAL HAEMORRHAGE
     Dosage: 2 G, 3X/DAY
     Route: 041
     Dates: start: 20190827, end: 20190904
  6. EBRANTIL [URAPIDIL HYDROCHLORIDE] [Concomitant]
     Indication: HYPERTENSION
     Dosage: 100 MG, 1X/DAY
     Route: 041
     Dates: start: 20190825, end: 20190904
  7. ROCEPHIN [Concomitant]
     Active Substance: CEFTRIAXONE SODIUM
     Indication: CEREBRAL HAEMORRHAGE
     Dosage: 2 G, 1X/DAY
     Route: 041
     Dates: start: 20190824, end: 20190826
  8. ROCEPHIN [Concomitant]
     Active Substance: CEFTRIAXONE SODIUM
     Indication: INFECTION

REACTIONS (3)
  - Hepatic function abnormal [Recovering/Resolving]
  - Product use issue [Unknown]
  - Off label use [Unknown]

NARRATIVE: CASE EVENT DATE: 20190825
